FAERS Safety Report 12719564 (Version 1)
Quarter: 2016Q3

REPORT INFORMATION
  Report Type: Spontaneous
  Country: US (occurrence: US)
  Receive Date: 20160907
  Receipt Date: 20160907
  Transmission Date: 20161109
  Serious: Yes (Life-Threatening, Hospitalization)
  Sender: FDA-Public Use
  Company Number: US-AUROBINDO-AUR-APL-2015-09480

PATIENT
  Age: 78 Year
  Sex: Male
  Weight: 108.6 kg

DRUGS (1)
  1. HYDROCHLOROTHIAZIDE 25 MG [Suspect]
     Active Substance: HYDROCHLOROTHIAZIDE
     Indication: RESPIRATORY DISORDER
     Dosage: 25 MG, UNK
     Route: 048
     Dates: start: 20150912, end: 20150914

REACTIONS (1)
  - Hyponatraemia [Recovered/Resolved]

NARRATIVE: CASE EVENT DATE: 20150914
